FAERS Safety Report 8789748 (Version 1)
Quarter: 2012Q4

REPORT INFORMATION
  Report Type: Spontaneous
  Country: GB (occurrence: None)
  Receive Date: 20120906
  Receipt Date: 20120906
  Transmission Date: 20130627
  Serious: Yes (Death)
  Sender: FDA-Public Use
  Company Number: TPA2012A06099

PATIENT
  Age: 81 Year
  Sex: Male

DRUGS (12)
  1. ADENURIC [Suspect]
     Indication: GOUT
     Route: 048
     Dates: start: 20120724, end: 20120724
  2. AZOPT (BRINZOLAMIDE) [Concomitant]
  3. CO-CODAMOL (CODEINE PHOSPHATE, PARACETAMOL) [Concomitant]
  4. LATANOPROST (LATANOPROST) [Concomitant]
  5. QUININE (QUININE) [Concomitant]
  6. FINASTERIDE (FINASTERIDE) [Concomitant]
  7. FRUSEMIDE (FUROSEMIDE) [Concomitant]
  8. RAMIPRIL (RAMIPRIL) [Concomitant]
  9. ATORVASTATIN (ATORVASTATIN) [Concomitant]
  10. PARACETAMOL (PARACETAMOL) [Concomitant]
  11. KETOPROFEN (KETOPROFEN) [Concomitant]
  12. ASPIRIN (ACETYLSALICYLIC ACID) [Concomitant]

REACTIONS (12)
  - Cellulitis [None]
  - Renal failure chronic [None]
  - Influenza like illness [None]
  - Pyrexia [None]
  - Pain [None]
  - Hypotension [None]
  - Arthralgia [None]
  - Pain in extremity [None]
  - Chills [None]
  - Sepsis [None]
  - Malaise [None]
  - Myocardial ischaemia [None]
